FAERS Safety Report 21600146 (Version 2)
Quarter: 2022Q4

REPORT INFORMATION
  Report Type: Report from Study
  Country: US (occurrence: US)
  Receive Date: 20221116
  Receipt Date: 20221130
  Transmission Date: 20230113
  Serious: Yes (Other)
  Sender: FDA-Public Use
  Company Number: US-ABBVIE-4201477

PATIENT
  Age: 68 Year
  Sex: Female

DRUGS (2)
  1. IMBRUVICA [Suspect]
     Active Substance: IBRUTINIB
     Indication: Diffuse large B-cell lymphoma
     Route: 048
     Dates: start: 20221022, end: 20221025
  2. MIRALAX [Concomitant]
     Active Substance: POLYETHYLENE GLYCOL 3350
     Indication: Product used for unknown indication

REACTIONS (9)
  - Septic shock [Unknown]
  - Tachyphrenia [Unknown]
  - Haemoglobin increased [Unknown]
  - Unevaluable event [Unknown]
  - Weight increased [Unknown]
  - Off label use [Unknown]
  - Platelet count increased [Unknown]
  - White blood cell count increased [Unknown]
  - Insomnia [Unknown]

NARRATIVE: CASE EVENT DATE: 20221001
